FAERS Safety Report 8760110 (Version 5)
Quarter: 2014Q1

REPORT INFORMATION
  Report Type: Spontaneous
  Country: US (occurrence: None)
  Receive Date: 20120814
  Receipt Date: 20140306
  Transmission Date: 20141002
  Serious: Yes (Disabling, Other)
  Sender: FDA-Public Use
  Company Number: NSR_00575_2012

PATIENT
  Age: 77 Year
  Sex: Female

DRUGS (5)
  1. PROPRANOLOL HYDROCHLORIDE [Suspect]
     Indication: ESSENTIAL TREMOR
     Route: 048
     Dates: start: 201112, end: 20120604
  2. PRIMIDONE [Concomitant]
  3. WARFARIN [Concomitant]
  4. VITAMIN D3 [Concomitant]
  5. TIAZAC XC [Concomitant]

REACTIONS (15)
  - Dysgeusia [None]
  - Throat irritation [None]
  - Foreign body [None]
  - Aphonia [None]
  - Product quality issue [None]
  - Oropharyngeal blistering [None]
  - Dysphagia [None]
  - Speech disorder [None]
  - Dysphonia [None]
  - Laryngeal oedema [None]
  - Constipation [None]
  - Calcinosis [None]
  - Cough [None]
  - Vocal cord thickening [None]
  - Pain [None]
